FAERS Safety Report 4755672-9 (Version None)
Quarter: 2005Q3

REPORT INFORMATION
  Report Type: 
  Country: None (occurrence: None)
  Receive Date: 20050830
  Receipt Date: 20050624
  Transmission Date: 20060218
  Serious: No
  Sender: FDA-Public Use
  Company Number: US-BRISTOL-MYERS SQUIBB COMPANY-13014907

PATIENT
  Age: 58 Year
  Sex: Female
  Weight: 127 kg

DRUGS (10)
  1. ABILIFY [Suspect]
     Indication: BIPOLAR DISORDER
     Dosage: DURATION: 4 TO 6 WEEKS
     Route: 048
     Dates: start: 20050401
  2. INSULIN [Concomitant]
  3. ATENOLOL [Concomitant]
  4. ATACAND [Concomitant]
  5. TRICOR [Concomitant]
  6. NIACIN [Concomitant]
  7. NEURONTIN [Concomitant]
  8. ZOLOFT [Concomitant]
  9. ASPIRIN [Concomitant]
  10. ZANTAC [Concomitant]

REACTIONS (4)
  - ASTHENIA [None]
  - MUSCLE TIGHTNESS [None]
  - RESTLESSNESS [None]
  - TREMOR [None]
